FAERS Safety Report 24323672 (Version 1)
Quarter: 2024Q3

REPORT INFORMATION
  Report Type: Spontaneous
  Country: ES (occurrence: ES)
  Receive Date: 20240916
  Receipt Date: 20240916
  Transmission Date: 20241017
  Serious: Yes (Death, Other)
  Sender: MYLAN
  Company Number: ES-ROCHE-10000008078

PATIENT
  Age: 16 Year
  Sex: Female

DRUGS (21)
  1. SORAFENIB [Suspect]
     Active Substance: SORAFENIB
     Indication: Hyperadrenocorticism
     Dosage: UNK
     Route: 065
  2. SORAFENIB [Suspect]
     Active Substance: SORAFENIB
     Indication: Adrenocortical carcinoma
  3. CISPLATIN [Suspect]
     Active Substance: CISPLATIN
     Indication: Hyperadrenocorticism
     Dosage: UNK
     Route: 065
  4. CISPLATIN [Suspect]
     Active Substance: CISPLATIN
     Indication: Adrenocortical carcinoma
  5. IFOSFAMIDE [Suspect]
     Active Substance: IFOSFAMIDE
     Indication: Hyperadrenocorticism
     Dosage: UNK
     Route: 065
  6. IFOSFAMIDE [Suspect]
     Active Substance: IFOSFAMIDE
     Indication: Adrenocortical carcinoma
  7. BEVACIZUMAB [Suspect]
     Active Substance: BEVACIZUMAB
     Indication: Adrenocortical carcinoma
     Dosage: UNK
     Route: 065
  8. BEVACIZUMAB [Suspect]
     Active Substance: BEVACIZUMAB
     Indication: Hyperadrenocorticism
  9. KETOCONAZOLE [Suspect]
     Active Substance: KETOCONAZOLE
     Indication: Adrenocortical carcinoma
     Dosage: UNK
     Route: 065
  10. KETOCONAZOLE [Suspect]
     Active Substance: KETOCONAZOLE
     Indication: Hyperadrenocorticism
  11. ETOPOSIDE [Suspect]
     Active Substance: ETOPOSIDE
     Indication: Hyperadrenocorticism
     Dosage: UNK
     Route: 065
  12. ETOPOSIDE [Suspect]
     Active Substance: ETOPOSIDE
     Indication: Adrenocortical carcinoma
  13. MESNA [Suspect]
     Active Substance: MESNA
     Indication: Hyperadrenocorticism
     Dosage: UNK
     Route: 065
  14. MESNA [Suspect]
     Active Substance: MESNA
     Indication: Adrenocortical carcinoma
  15. DOXORUBICIN HYDROCHLORIDE [Suspect]
     Active Substance: DOXORUBICIN HYDROCHLORIDE
     Indication: Adrenocortical carcinoma
     Dosage: UNK
     Route: 065
  16. DOXORUBICIN HYDROCHLORIDE [Suspect]
     Active Substance: DOXORUBICIN HYDROCHLORIDE
     Indication: Hyperadrenocorticism
  17. MITOTANE [Concomitant]
     Active Substance: MITOTANE
     Dosage: UNK
     Route: 065
  18. PACLITAXEL [Concomitant]
     Active Substance: PACLITAXEL
     Dosage: UNK
     Route: 065
  19. CAPECITABINE [Concomitant]
     Active Substance: CAPECITABINE
     Dosage: UNK
     Route: 065
  20. GEMCITABINE [Concomitant]
     Active Substance: GEMCITABINE
     Dosage: UNK
     Route: 065
  21. HYDROCORTISONE [Concomitant]
     Active Substance: HYDROCORTISONE\HYDROCORTISONE ACETATE
     Dosage: UNK
     Route: 065

REACTIONS (6)
  - Pneumonia [Fatal]
  - Cystitis haemorrhagic [Fatal]
  - Gastroenteritis [Fatal]
  - Mucosal inflammation [Fatal]
  - Pyrexia [Fatal]
  - Off label use [Unknown]
